FAERS Safety Report 7112242-5 (Version None)
Quarter: 2010Q4

REPORT INFORMATION
  Report Type: 
  Country: None (occurrence: None)
  Receive Date: 20101119
  Receipt Date: 20100422
  Transmission Date: 20110411
  Serious: No
  Sender: FDA-Public Use
  Company Number: A0856345A

PATIENT
  Age: 73 Year
  Sex: Male

DRUGS (4)
  1. AVODART [Suspect]
     Indication: BENIGN PROSTATIC HYPERPLASIA
     Dosage: .5MG PER DAY
     Route: 048
     Dates: start: 20100301, end: 20100401
  2. FLOMAX [Concomitant]
     Dosage: .4MG PER DAY
  3. LIPITOR [Concomitant]
     Dosage: 20MG PER DAY
  4. SYNTHROID [Concomitant]
     Dosage: 200MCG PER DAY

REACTIONS (2)
  - PRURITUS [None]
  - URTICARIA [None]
